FAERS Safety Report 10205774 (Version 2)
Quarter: 2014Q2

REPORT INFORMATION
  Report Type: Spontaneous
  Country: US (occurrence: US)
  Receive Date: 20140530
  Receipt Date: 20140613
  Transmission Date: 20141212
  Serious: Yes (Hospitalization, Other)
  Sender: FDA-Public Use
  Company Number: US-AMGEN-USASP2014038897

PATIENT
  Age: 85 Year
  Sex: Male
  Weight: 76.19 kg

DRUGS (1)
  1. NPLATE [Suspect]
     Indication: IMMUNE THROMBOCYTOPENIC PURPURA
     Dosage: 630 MUG, UNK
     Route: 065
     Dates: start: 20100527

REACTIONS (2)
  - Cerebrovascular accident [Unknown]
  - Platelet count abnormal [Unknown]
